FAERS Safety Report 11613532 (Version 2)
Quarter: 2016Q4

REPORT INFORMATION
  Report Type: Spontaneous
  Country: GB (occurrence: GB)
  Receive Date: 20151008
  Receipt Date: 20161101
  Transmission Date: 20170206
  Serious: Yes (Hospitalization, Other)
  Sender: FDA-Public Use
  Company Number: GB-PFIZER INC-2015332035

PATIENT
  Age: 51 Year
  Sex: Male

DRUGS (11)
  1. PREGABALIN. [Suspect]
     Active Substance: PREGABALIN
     Indication: ANXIETY
     Dosage: 150 MG, 1X/DAY (QD)
     Route: 048
     Dates: start: 20150513, end: 20150517
  2. AMILORIDE [Concomitant]
     Active Substance: AMILORIDE
     Indication: SCHIZOPHRENIA
     Dosage: 550 MG, 1X/DAY (QD)
     Route: 048
  3. DIAZEPAM. [Concomitant]
     Active Substance: DIAZEPAM
     Dosage: UNK
     Route: 065
  4. RAMIPRIL. [Concomitant]
     Active Substance: RAMIPRIL
     Indication: HYPERTENSION
     Dosage: 5 MG, 1X/DAY (QD)
  5. CLOZARIL [Interacting]
     Active Substance: CLOZAPINE
     Dosage: 700 MG, 1X/DAY
     Route: 048
  6. GLICLAZIDE [Concomitant]
     Active Substance: GLICLAZIDE
     Indication: DIABETES MELLITUS
     Dosage: 40 MG, 1X/DAY (QD)
     Route: 048
  7. PIRENZEPINE [Concomitant]
     Active Substance: PIRENZEPINE
     Indication: SALIVARY HYPERSECRETION
     Dosage: 100 MG, 1X/DAY (QD)
     Route: 048
  8. DIAZEPAM. [Concomitant]
     Active Substance: DIAZEPAM
     Indication: PRODUCT USED FOR UNKNOWN INDICATION
     Dosage: 2 MG, 3X/DAY (TID)
     Route: 065
  9. METFORMIN [Concomitant]
     Active Substance: METFORMIN HYDROCHLORIDE
     Indication: DIABETES MELLITUS
     Dosage: 1 G, 1X/DAY (QD)
     Route: 048
  10. CLOZARIL [Interacting]
     Active Substance: CLOZAPINE
     Indication: SCHIZOPHRENIA
     Dosage: 900 MG, (300 MG MORNING AND 600 MG NIGHT)
     Route: 048
     Dates: start: 20021118
  11. SODIUM VALPROATE [Concomitant]
     Active Substance: VALPROATE SODIUM
     Indication: SCHIZOPHRENIA
     Dosage: 2.5 MG, 1X/DAY (QD)
     Route: 048

REACTIONS (4)
  - Generalised tonic-clonic seizure [Unknown]
  - Drug interaction [Unknown]
  - Haemoglobin decreased [Unknown]
  - Seizure [Recovered/Resolved]

NARRATIVE: CASE EVENT DATE: 20150517
